FAERS Safety Report 5839491-8 (Version None)
Quarter: 2008Q3

REPORT INFORMATION
  Report Type: 
  Country: None (occurrence: None)
  Receive Date: 20080807
  Receipt Date: 20080725
  Transmission Date: 20090109
  Serious: Yes (Other)
  Sender: FDA-Public Use
  Company Number: THYR-10106

PATIENT
  Age: 53 Year
  Sex: Female

DRUGS (1)
  1. THYROGEN [Suspect]
     Indication: DIAGNOSTIC PROCEDURE
     Dosage: 0.9 MG, QD, INTRAMUSCULAR
     Route: 030

REACTIONS (5)
  - BACK PAIN [None]
  - DISEASE PROGRESSION [None]
  - PARAPARESIS [None]
  - PATHOLOGICAL FRACTURE [None]
  - SPINAL FRACTURE [None]
